FAERS Safety Report 4673278-7 (Version None)
Quarter: 2005Q2

REPORT INFORMATION
  Report Type: 
  Country: None (occurrence: None)
  Receive Date: 20050523
  Receipt Date: 20050523
  Transmission Date: 20051028
  Serious: Yes (Hospitalization)
  Sender: FDA-Public Use
  Company Number: None

PATIENT
  Age: 15 Year
  Sex: Male
  Weight: 77 kg

DRUGS (2)
  1. LAMICTAL [Suspect]
     Indication: ATTENTION DEFICIT/HYPERACTIVITY DISORDER
     Dosage: ? BID + PO
     Route: 048
     Dates: start: 20050501
  2. LAMICTAL [Suspect]
     Indication: BIPOLAR DISORDER
     Dosage: ? BID + PO
     Route: 048
     Dates: start: 20050501

REACTIONS (3)
  - INCORRECT DOSE ADMINISTERED [None]
  - MEDICATION ERROR [None]
  - STEVENS-JOHNSON SYNDROME [None]
